FAERS Safety Report 19456674 (Version 1)
Quarter: 2021Q2

REPORT INFORMATION
  Report Type: Spontaneous
  Country: US (occurrence: US)
  Receive Date: 20210624
  Receipt Date: 20210624
  Transmission Date: 20210717
  Serious: No
  Sender: FDA-Public Use
  Company Number: US-AUROBINDO-AUR-APL-2021-008621

PATIENT
  Age: 50 Year
  Sex: Female

DRUGS (4)
  1. ZOLPIDEM TARTRATE TABLETS 10 MG [Suspect]
     Active Substance: ZOLPIDEM TARTRATE
     Dosage: 1 DOSAGE FORM, ONCE A DAY (IN THE EVENING)
     Route: 048
     Dates: start: 20210222
  2. ZOLPIDEM TARTRATE TABLETS 10 MG [Suspect]
     Active Substance: ZOLPIDEM TARTRATE
     Dosage: 1 DOSAGE FORM, ONCE A DAY (IN THE EVENING)
     Route: 048
     Dates: start: 20210223
  3. ZOLPIDEM TARTRATE TABLETS 10 MG [Suspect]
     Active Substance: ZOLPIDEM TARTRATE
     Dosage: 1 DOSAGE FORM, ONCE A DAY (IN THE EVENING)
     Route: 048
     Dates: start: 20210221
  4. ZOLPIDEM TARTRATE TABLETS 10 MG [Suspect]
     Active Substance: ZOLPIDEM TARTRATE
     Indication: INSOMNIA
     Dosage: UNK
     Route: 048
     Dates: start: 2018

REACTIONS (4)
  - Drug ineffective [Unknown]
  - Poor quality sleep [Recovering/Resolving]
  - Nightmare [Recovering/Resolving]
  - Product quality issue [Unknown]

NARRATIVE: CASE EVENT DATE: 20210221
